FAERS Safety Report 8193342-8 (Version None)
Quarter: 2012Q1

REPORT INFORMATION
  Report Type: 
  Country: None (occurrence: None)
  Receive Date: 20120308
  Receipt Date: 20120306
  Transmission Date: 20120608
  Serious: Yes (Disabling)
  Sender: FDA-Public Use
  Company Number: US-PFIZER INC-2012018759

PATIENT
  Sex: Female
  Weight: 46.259 kg

DRUGS (2)
  1. LYRICA [Suspect]
     Indication: FIBROMYALGIA
     Dosage: 25MG IN THE MORNING, 25MG IN THE AFTERNOON AND 50MG AT NIGHT
     Route: 048
     Dates: start: 20080101
  2. ALPRAZOLAM [Concomitant]
     Indication: ANXIETY
     Dosage: UNK

REACTIONS (1)
  - FIBROMYALGIA [None]
